FAERS Safety Report 21816434 (Version 1)
Quarter: 2023Q1

REPORT INFORMATION
  Report Type: Spontaneous
  Country: US (occurrence: None)
  Receive Date: 20230103
  Receipt Date: 20230103
  Transmission Date: 20230417
  Serious: Yes (Death)
  Sender: FDA-Public Use
  Company Number: None

PATIENT
  Age: 67 Year
  Sex: Male
  Weight: 74 kg

DRUGS (4)
  1. PEMBROLIZUMAB [Suspect]
     Active Substance: PEMBROLIZUMAB
     Indication: Adenocarcinoma metastatic
     Dosage: OTHER FREQUENCY : EVERY 3 WEEKS;?
     Route: 040
     Dates: start: 20221024, end: 20221122
  2. CARBOPLATIN [Concomitant]
     Active Substance: CARBOPLATIN
     Dates: start: 20221022, end: 20221124
  3. pemetrexted [Concomitant]
     Dates: start: 20221124, end: 20221124
  4. FOSAPREPITANT [Concomitant]
     Active Substance: FOSAPREPITANT
     Dates: start: 20221022, end: 20221124

REACTIONS (2)
  - Toxic epidermal necrolysis [None]
  - Bacterial sepsis [None]

NARRATIVE: CASE EVENT DATE: 20221224
